FAERS Safety Report 9471142 (Version 1)
Quarter: 2013Q3

REPORT INFORMATION
  Report Type: Spontaneous
  Country: US (occurrence: US)
  Receive Date: 20130822
  Receipt Date: 20130822
  Transmission Date: 20140515
  Serious: Yes (Other)
  Sender: FDA-Public Use
  Company Number: US-TEVA-427662USA

PATIENT
  Age: 21 Year
  Sex: Female
  Weight: 56.75 kg

DRUGS (2)
  1. PLAN B ONE-STEP [Suspect]
     Indication: POST COITAL CONTRACEPTION
     Dosage: 1.5 MILLIGRAM DAILY;
     Route: 048
     Dates: start: 2012, end: 2012
  2. PLAN B ONE-STEP [Suspect]
     Dosage: 1.5 MILLIGRAM DAILY;
     Route: 048
     Dates: start: 2012, end: 2012

REACTIONS (4)
  - Benign hydatidiform mole [Recovered/Resolved]
  - Pregnancy after post coital contraception [Recovered/Resolved]
  - Metrorrhagia [Unknown]
  - Drug ineffective [Recovered/Resolved]
